FAERS Safety Report 5490974-2 (Version None)
Quarter: 2007Q4

REPORT INFORMATION
  Report Type: 
  Country: None (occurrence: None)
  Receive Date: 20071019
  Receipt Date: 20071009
  Transmission Date: 20080405
  Serious: Yes (Other)
  Sender: FDA-Public Use
  Company Number: FR-PFIZER INC-2007084464

PATIENT
  Age: 15 Year
  Sex: Female
  Weight: 52 kg

DRUGS (6)
  1. VORICONAZOLE [Suspect]
     Indication: ASPERGILLOMA
  2. COTRIM [Concomitant]
     Indication: INFANTILE SEPTIC GRANULOMATOSIS
  3. CEFTRIAXONE SODIUM [Concomitant]
     Indication: LUNG DISORDER
     Dates: start: 20070101, end: 20070101
  4. GENTAMICIN SULFATE [Concomitant]
     Indication: LUNG DISORDER
     Dates: start: 20070101, end: 20070101
  5. VANCOMYCIN HYDROCHLORIDE [Concomitant]
     Indication: LUNG DISORDER
     Dates: start: 20070101, end: 20070101
  6. AMPHOTERICIN B [Concomitant]
     Dates: start: 20070401, end: 20070901

REACTIONS (11)
  - ABDOMINAL PAIN [None]
  - ANOREXIA [None]
  - BACK PAIN [None]
  - BLOOD PHOSPHORUS DECREASED [None]
  - CELL DEATH [None]
  - CHOLESTASIS [None]
  - DIARRHOEA [None]
  - HYPOCALCAEMIA [None]
  - NAUSEA [None]
  - RENAL DISORDER [None]
  - VOMITING [None]
